FAERS Safety Report 20815680 (Version 1)
Quarter: 2022Q2

REPORT INFORMATION
  Report Type: Spontaneous
  Country: US (occurrence: US)
  Receive Date: 20220511
  Receipt Date: 20220511
  Transmission Date: 20220720
  Serious: No
  Sender: FDA-Public Use
  Company Number: US-PFIZER INC-202101605483

PATIENT
  Age: 57 Year
  Sex: Female
  Weight: 60.33 kg

DRUGS (1)
  1. DOXYCYCLINE HYCLATE [Suspect]
     Active Substance: DOXYCYCLINE HYCLATE
     Indication: Eczema
     Dosage: UNK
     Dates: end: 202110

REACTIONS (2)
  - Off label use [Unknown]
  - Paraesthesia [Unknown]
